FAERS Safety Report 24199243 (Version 5)
Quarter: 2024Q4

REPORT INFORMATION
  Report Type: Report from Study
  Country: ID (occurrence: ID)
  Receive Date: 20240812
  Receipt Date: 20241203
  Transmission Date: 20250115
  Serious: Yes (Hospitalization, Other)
  Sender: ROCHE
  Company Number: ID-ROCHE-3549568

PATIENT
  Age: 76 Year
  Sex: Male

DRUGS (2)
  1. AVASTIN [Suspect]
     Active Substance: BEVACIZUMAB
     Indication: Hepatocellular carcinoma
     Route: 065
  2. TECENTRIQ [Suspect]
     Active Substance: ATEZOLIZUMAB
     Indication: Hepatocellular carcinoma
     Route: 065

REACTIONS (7)
  - Epistaxis [Unknown]
  - Hypertension [Unknown]
  - Vascular fragility [Unknown]
  - Proteinuria [Recovering/Resolving]
  - Decreased appetite [Recovering/Resolving]
  - Weight decreased [Recovering/Resolving]
  - Renal impairment [Unknown]
